FAERS Safety Report 6282530-3 (Version None)
Quarter: 2009Q3

REPORT INFORMATION
  Report Type: 
  Country: None (occurrence: None)
  Receive Date: 20090724
  Receipt Date: 20090713
  Transmission Date: 20100115
  Serious: Yes (Hospitalization)
  Sender: FDA-Public Use
  Company Number: TR-AVENTIS-200916958GDDC

PATIENT
  Age: 33 Year
  Sex: Male

DRUGS (1)
  1. KETEK [Suspect]
     Indication: SINUSITIS
     Route: 048
     Dates: start: 20090518, end: 20090520

REACTIONS (3)
  - DIZZINESS [None]
  - FATIGUE [None]
  - HEPATITIS TOXIC [None]
